FAERS Safety Report 6801296-9 (Version None)
Quarter: 2010Q2

REPORT INFORMATION
  Report Type: 
  Country: None (occurrence: None)
  Receive Date: 20100629
  Receipt Date: 20100621
  Transmission Date: 20101027
  Serious: Yes (Death, Hospitalization)
  Sender: FDA-Public Use
  Company Number: CA-ROCHE-654601

PATIENT
  Sex: Female
  Weight: 77.8 kg

DRUGS (9)
  1. TOCILIZUMAB [Suspect]
     Indication: RHEUMATOID ARTHRITIS
     Dosage: PART 2 OF STUDY - OPEN LABEL TOCILIZUMAB RECEIVED.LAST DOSE PRIOR TO SAE 04 JUNE 09.
     Route: 042
     Dates: end: 20090902
  2. BLINDED TOCILIZUMAB [Suspect]
     Indication: RHEUMATOID ARTHRITIS
     Dosage: FORM: INFUSION SOLUTION.
     Route: 042
     Dates: start: 20080603
  3. METHOTREXATE [Concomitant]
     Dates: start: 20070101
  4. FOLIC ACID [Concomitant]
     Dates: start: 20070101
  5. PENNSAID [Concomitant]
     Dosage: DOSE: 1 APPL PRN
     Dates: start: 20090406
  6. SALBUTAMOL [Concomitant]
     Dates: start: 20040101
  7. VITAMIN D [Concomitant]
     Dosage: TDD: 1000 IU
     Dates: start: 20080401
  8. CHAMPIX [Concomitant]
     Dates: start: 20090212
  9. SPIRIVA [Concomitant]
     Dates: start: 20090209

REACTIONS (1)
  - NON-SMALL CELL LUNG CANCER METASTATIC [None]
